FAERS Safety Report 13578240 (Version 2)
Quarter: 2017Q3

REPORT INFORMATION
  Report Type: Spontaneous
  Country: US (occurrence: US)
  Receive Date: 20170524
  Receipt Date: 20170724
  Transmission Date: 20171127
  Serious: No
  Sender: FDA-Public Use
  Company Number: US-SHIRE-US201711437

PATIENT

DRUGS (5)
  1. XIIDRA [Suspect]
     Active Substance: LIFITEGRAST
     Indication: DRY EYE
     Dosage: 1 DROP IN OU, 1X/DAY:QD
     Route: 047
     Dates: start: 201705, end: 201705
  2. SIMILASAN FOR INFLAMMATION OF THE MOUTH AND THROAT [Concomitant]
     Active Substance: HOMEOPATHICS
     Indication: DRY EYE
     Dosage: UNK, UNKNOWN
     Route: 065
  3. RETAINE PM [Concomitant]
     Active Substance: MINERAL OIL\PETROLATUM
     Indication: DRY EYE
     Dosage: UNK, UNKNOWN
     Route: 065
  4. RETAINE MGD [Concomitant]
     Active Substance: LIGHT MINERAL OIL\MINERAL OIL
     Indication: DRY EYE
     Dosage: UNK, UNKNOWN
     Route: 065
  5. XIIDRA [Suspect]
     Active Substance: LIFITEGRAST
     Dosage: 1 DROP IN OU, 2X/DAY:BID
     Route: 047
     Dates: start: 20170521

REACTIONS (4)
  - Wrong technique in product usage process [Unknown]
  - Product quality issue [Not Recovered/Not Resolved]
  - Inappropriate schedule of drug administration [Recovered/Resolved]
  - Instillation site pain [Not Recovered/Not Resolved]
